FAERS Safety Report 25290928 (Version 4)
Quarter: 2025Q2

REPORT INFORMATION
  Report Type: Report from Study
  Country: US (occurrence: US)
  Receive Date: 20250510
  Receipt Date: 20250613
  Transmission Date: 20250716
  Serious: Yes (Hospitalization, Disabling)
  Sender: SANOFI AVENTIS
  Company Number: US-SA-2025SA120995

PATIENT
  Age: 7 Month
  Sex: Male

DRUGS (1)
  1. LUMIZYME [Suspect]
     Active Substance: ALGLUCOSIDASE ALFA
     Indication: Glycogen storage disease type II
     Dosage: 300 (UNITS NOT PROVIDED) QOW
     Route: 042
     Dates: start: 202112

REACTIONS (5)
  - Wheelchair user [Not Recovered/Not Resolved]
  - Fabry^s disease [Unknown]
  - Condition aggravated [Unknown]
  - Mechanical ventilation [Not Recovered/Not Resolved]
  - Drug specific antibody present [Recovering/Resolving]

NARRATIVE: CASE EVENT DATE: 20220804
